FAERS Safety Report 7892377-X (Version None)
Quarter: 2011Q4

REPORT INFORMATION
  Report Type: 
  Country: None (occurrence: None)
  Receive Date: 20111104
  Receipt Date: 20111006
  Transmission Date: 20120403
  Serious: Yes (Life-Threatening, Hospitalization)
  Sender: FDA-Public Use
  Company Number: CA-JNJFOC-20110603156

PATIENT
  Sex: Female
  Weight: 96 kg

DRUGS (2)
  1. USTEKINUMAB [Suspect]
     Route: 058
     Dates: start: 20101221
  2. USTEKINUMAB [Suspect]
     Indication: PUSTULAR PSORIASIS
     Route: 058
     Dates: start: 20110512

REACTIONS (6)
  - FOOT FRACTURE [None]
  - PNEUMONIA [None]
  - HYPOTENSION [None]
  - HYPOXIA [None]
  - BRADYCARDIA [None]
  - RENAL FAILURE ACUTE [None]
